FAERS Safety Report 8535425-6 (Version None)
Quarter: 2012Q3

REPORT INFORMATION
  Report Type: 
  Country: None (occurrence: None)
  Receive Date: 20120725
  Receipt Date: 20120712
  Transmission Date: 20120928
  Serious: Yes (Death)
  Sender: FDA-Public Use
  Company Number: JP-009507513-2012SP024851

PATIENT

DRUGS (3)
  1. RESLIN TABLETS 25 [Concomitant]
     Indication: DEPRESSION
     Dosage: 75 MG, QD
     Route: 048
     Dates: start: 20091117, end: 20120415
  2. MIRTAZAPINE [Suspect]
     Indication: DEPRESSION
     Dosage: 30 MG, QD
     Route: 048
     Dates: start: 20120418, end: 20120502
  3. CLOXAZOLAM [Concomitant]
     Indication: ANXIETY
     Dosage: 4-6 MG DAILY
     Route: 048
     Dates: start: 20090420, end: 20120502

REACTIONS (1)
  - COMPLETED SUICIDE [None]
